FAERS Safety Report 10461272 (Version 1)
Quarter: 2014Q3

REPORT INFORMATION
  Report Type: Spontaneous
  Country: US (occurrence: None)
  Receive Date: 20140917
  Receipt Date: 20140917
  Transmission Date: 20150326
  Serious: Yes (Hospitalization, Other)
  Sender: FDA-Public Use
  Company Number: None

PATIENT
  Age: 45 Year
  Sex: Female
  Weight: 80 kg

DRUGS (1)
  1. PYRIDIUM [Suspect]
     Active Substance: PHENAZOPYRIDINE
     Indication: ABDOMINAL PAIN LOWER
     Dates: start: 20140908, end: 20140915

REACTIONS (6)
  - Fatigue [None]
  - Methaemoglobinaemia [None]
  - Jaundice [None]
  - Renal failure acute [None]
  - Haemolytic anaemia [None]
  - Overdose [None]

NARRATIVE: CASE EVENT DATE: 20140915
